FAERS Safety Report 4778290-5 (Version None)
Quarter: 2005Q3

REPORT INFORMATION
  Report Type: 
  Country: None (occurrence: None)
  Receive Date: 20050926
  Receipt Date: 20041216
  Transmission Date: 20060218
  Serious: Yes (Other)
  Sender: FDA-Public Use
  Company Number: US-BRISTOL-MYERS SQUIBB COMPANY-12797023

PATIENT
  Age: 34 Year
  Sex: Female

DRUGS (4)
  1. STADOL [Suspect]
     Route: 045
     Dates: start: 19980602, end: 19990801
  2. FIORICET + CODEINE [Concomitant]
  3. VICODIN [Concomitant]
  4. PROMETHAZINE [Concomitant]

REACTIONS (1)
  - DEPENDENCE [None]
